FAERS Safety Report 8301626-5 (Version None)
Quarter: 2012Q2

REPORT INFORMATION
  Report Type: 
  Country: None (occurrence: None)
  Receive Date: 20120420
  Receipt Date: 20120412
  Transmission Date: 20120825
  Serious: Yes (Hospitalization)
  Sender: FDA-Public Use
  Company Number: US-US-EMD SERONO, INC.-7125874

PATIENT
  Sex: Female

DRUGS (2)
  1. INSULIN [Concomitant]
     Indication: TYPE 1 DIABETES MELLITUS
  2. REBIF [Suspect]
     Indication: PRODUCT USED FOR UNKNOWN INDICATION
     Route: 058
     Dates: start: 20110224, end: 20120401

REACTIONS (8)
  - CHOLELITHIASIS [None]
  - INAPPROPRIATE SCHEDULE OF DRUG ADMINISTRATION [None]
  - BLOOD GLUCOSE INCREASED [None]
  - SPINAL COMPRESSION FRACTURE [None]
  - CHILLS [None]
  - FALL [None]
  - OSTEOPOROSIS [None]
  - LIVER FUNCTION TEST ABNORMAL [None]
